FAERS Safety Report 7122420-7 (Version None)
Quarter: 2010Q4

REPORT INFORMATION
  Report Type: 
  Country: None (occurrence: None)
  Receive Date: 20101124
  Receipt Date: 20101117
  Transmission Date: 20110411
  Serious: Yes (Hospitalization)
  Sender: FDA-Public Use
  Company Number: JP-NOVOPROD-317899

PATIENT
  Age: 52 Year
  Sex: Male
  Weight: 94 kg

DRUGS (3)
  1. LEVEMIR [Suspect]
     Indication: TYPE 2 DIABETES MELLITUS
     Dosage: 10 TO 14 U
     Route: 058
     Dates: end: 20090727
  2. NOVORAPID CHU FLEXPEN [Suspect]
     Indication: TYPE 2 DIABETES MELLITUS
     Dosage: 51 U, QD
     Route: 058
     Dates: end: 20090716
  3. HUMALOG [Concomitant]
     Indication: TYPE 2 DIABETES MELLITUS
     Dosage: 120 U, QD
     Route: 058
     Dates: start: 20090717, end: 20090727

REACTIONS (2)
  - ANTI-INSULIN ANTIBODY POSITIVE [None]
  - HYPERGLYCAEMIA [None]
